FAERS Safety Report 6932396-0 (Version None)
Quarter: 2010Q3

REPORT INFORMATION
  Report Type: 
  Country: None (occurrence: None)
  Receive Date: 20100817
  Receipt Date: 20100805
  Transmission Date: 20110219
  Serious: Yes (Hospitalization)
  Sender: FDA-Public Use
  Company Number: 1-18149232

PATIENT
  Age: 73 Year
  Sex: Female
  Weight: 89.8122 kg

DRUGS (7)
  1. QUALAQUIN [Suspect]
     Indication: MUSCLE SPASMS
     Dosage: ^AS NEEDED^, ORAL
     Route: 048
     Dates: start: 20071130, end: 20081031
  2. QUININE 260 MG (IVAX) [Suspect]
     Indication: MUSCLE SPASMS
     Dosage: ^AS NEEDED^, ORAL
     Route: 048
     Dates: start: 20050722, end: 20070517
  3. SIMVASTATIN [Concomitant]
  4. SPIRIVA (TIOTROPIUM ORAL INHALATION) [Concomitant]
  5. ALBUTEROL [Concomitant]
  6. DETROL LA [Concomitant]
  7. COZAAR [Concomitant]

REACTIONS (10)
  - ANXIETY [None]
  - BLOOD IRON DECREASED [None]
  - CHRONIC OBSTRUCTIVE PULMONARY DISEASE [None]
  - DISCOMFORT [None]
  - DRUG HYPERSENSITIVITY [None]
  - MICROCYTIC ANAEMIA [None]
  - NERVOUSNESS [None]
  - PAIN [None]
  - PULMONARY HYPERTENSION [None]
  - THROMBOCYTOPENIA [None]
